FAERS Safety Report 6977328-4 (Version None)
Quarter: 2010Q3

REPORT INFORMATION
  Report Type: 
  Country: None (occurrence: None)
  Receive Date: 20100910
  Receipt Date: 20100818
  Transmission Date: 20110219
  Serious: Yes (Other)
  Sender: FDA-Public Use
  Company Number: PHHY2010CH54736

PATIENT
  Sex: Female

DRUGS (2)
  1. AFINITOR [Suspect]
     Indication: RENAL CELL CARCINOMA
     Dosage: 10 MG, DAILY
     Dates: start: 20100519, end: 20100809
  2. SUTENT [Concomitant]
     Dosage: UNK
     Dates: start: 20090710, end: 20090828

REACTIONS (3)
  - JAUNDICE [None]
  - MALIGNANT NEOPLASM PROGRESSION [None]
  - OSTEOLYSIS [None]
